FAERS Safety Report 25158276 (Version 1)
Quarter: 2025Q2

REPORT INFORMATION
  Report Type: Spontaneous
  Country: CA (occurrence: CA)
  Receive Date: 20250404
  Receipt Date: 20250404
  Transmission Date: 20250716
  Serious: Yes (Hospitalization, Other)
  Sender: NOVO NORDISK
  Company Number: CA-NOVOPROD-1399575

PATIENT
  Age: 52 Year
  Sex: Male

DRUGS (3)
  1. OZEMPIC [Suspect]
     Active Substance: SEMAGLUTIDE
     Dosage: 0.50 MG, QW
  2. OZEMPIC [Suspect]
     Active Substance: SEMAGLUTIDE
     Indication: Obesity
     Dosage: 0.25 MG, QW
     Dates: start: 20240807
  3. OZEMPIC [Suspect]
     Active Substance: SEMAGLUTIDE
     Dosage: 0.75 MG, QW
     Dates: end: 20241016

REACTIONS (3)
  - Supraventricular tachycardia [Recovered/Resolved]
  - Umbilical hernia [Unknown]
  - Product use in unapproved indication [Recovered/Resolved]

NARRATIVE: CASE EVENT DATE: 20240807
